FAERS Safety Report 10085647 (Version 1)
Quarter: 2014Q2

REPORT INFORMATION
  Report Type: Report from Study
  Country: US (occurrence: US)
  Receive Date: 20140418
  Receipt Date: 20140418
  Transmission Date: 20141212
  Serious: Yes (Hospitalization, Other)
  Sender: FDA-Public Use
  Company Number: US-JNJFOC-20140408808

PATIENT
  Sex: Female
  Weight: 117.94 kg

DRUGS (2)
  1. REMICADE [Suspect]
     Indication: PSORIATIC ARTHROPATHY
     Route: 042
     Dates: start: 2004, end: 2006
  2. REMICADE [Suspect]
     Indication: PSORIATIC ARTHROPATHY
     Route: 042
     Dates: start: 2006, end: 2010

REACTIONS (3)
  - Renal failure acute [Unknown]
  - Platelet count decreased [Recovered/Resolved]
  - Drug ineffective [Not Recovered/Not Resolved]
